FAERS Safety Report 5585739-7 (Version None)
Quarter: 2008Q1

REPORT INFORMATION
  Report Type: 
  Country: None (occurrence: None)
  Receive Date: 20080104
  Receipt Date: 20071221
  Transmission Date: 20080703
  Serious: Yes (Death, Life-Threatening, Hospitalization)
  Sender: FDA-Public Use
  Company Number: 2007P1000728

PATIENT
  Age: 56 Year
  Sex: Male

DRUGS (4)
  1. BUSULFAN (BUSULFAN) [Suspect]
     Indication: STEM CELL TRANSPLANT
     Dosage: 20.1 ML; X1; IV, 26.8 ML/ X1; IV, 6.7 ML; XL; IV
     Route: 042
     Dates: start: 20070322, end: 20070322
  2. BUSULFAN (BUSULFAN) [Suspect]
     Indication: STEM CELL TRANSPLANT
     Dosage: 20.1 ML; X1; IV, 26.8 ML/ X1; IV, 6.7 ML; XL; IV
     Route: 042
     Dates: start: 20070323, end: 20070325
  3. BUSULFAN (BUSULFAN) [Suspect]
     Indication: STEM CELL TRANSPLANT
     Dosage: 20.1 ML; X1; IV, 26.8 ML/ X1; IV, 6.7 ML; XL; IV
     Route: 042
     Dates: start: 20070326, end: 20070326
  4. VALPROATE SODIUM [Concomitant]

REACTIONS (4)
  - ANOREXIA [None]
  - ENCEPHALITIS VIRAL [None]
  - NAUSEA [None]
  - SEPSIS [None]
